FAERS Safety Report 7590188-6 (Version None)
Quarter: 2011Q3

REPORT INFORMATION
  Report Type: 
  Country: None (occurrence: None)
  Receive Date: 20110705
  Receipt Date: 20110629
  Transmission Date: 20111222
  Serious: Yes (Death)
  Sender: FDA-Public Use
  Company Number: CO-PFIZER INC-2011146548

PATIENT
  Age: 64 Year
  Sex: Male

DRUGS (2)
  1. LOSARTAN [Concomitant]
     Dosage: 50 MG, 1X/DAY
     Route: 048
  2. LIPITOR [Suspect]
     Dosage: 10 MG, 1X/DAY
     Route: 048
     Dates: start: 20090416

REACTIONS (1)
  - DEATH [None]
